FAERS Safety Report 6733888-X (Version None)
Quarter: 2010Q2

REPORT INFORMATION
  Report Type: 
  Country: None (occurrence: None)
  Receive Date: 20100520
  Receipt Date: 20100507
  Transmission Date: 20101027
  Serious: Yes (Other)
  Sender: FDA-Public Use
  Company Number: US-JNJCH-2010011221

PATIENT
  Age: 30 Month
  Sex: Male
  Weight: 16.3 kg

DRUGS (5)
  1. CHILDREN'S ZYRTEC ALLERGY [Suspect]
     Indication: DRUG USE FOR UNKNOWN INDICATION
     Dosage: TEXT:UNKNOWN
     Route: 048
  2. TYLENOL INFANTS DROPS [Suspect]
     Indication: DRUG USE FOR UNKNOWN INDICATION
     Dosage: TEXT:UNKNOWN
     Route: 048
  3. TYLENOL INFANTS DROPS [Suspect]
     Dosage: TEXT:UNKNOWN
     Route: 048
  4. TYLENOL CHILDRENS [Suspect]
     Indication: PAIN
     Dosage: TEXT:1 TEASPOONFUL EVERY 4-6 HOURS AS NEEDED
     Route: 048
  5. CHILDREN'S MOTRIN [Suspect]
     Indication: PAIN
     Dosage: TEXT:EVERY 4-6 HOURS AS NEEDED
     Route: 048

REACTIONS (4)
  - ADVERSE EVENT [None]
  - PRODUCT QUALITY ISSUE [None]
  - WHEEZING [None]
  - WRONG DRUG ADMINISTERED [None]
